FAERS Safety Report 9371416 (Version 2)
Quarter: 2013Q3

REPORT INFORMATION
  Report Type: Report from Study
  Country: GB (occurrence: GB)
  Receive Date: 20130627
  Receipt Date: 20130920
  Transmission Date: 20140515
  Serious: Yes (Hospitalization, Other)
  Sender: FDA-Public Use
  Company Number: GB-ROCHE-1241710

PATIENT
  Age: 93 Year
  Sex: Male

DRUGS (9)
  1. RANIBIZUMAB [Suspect]
     Indication: AGE-RELATED MACULAR DEGENERATION
     Dosage: LAST DOSE BEFORE ADVERSE EVENT ON 07/JUN/2013
     Route: 050
     Dates: start: 20101119
  2. RANIBIZUMAB [Suspect]
     Route: 050
     Dates: start: 20130607
  3. ASPIRIN [Concomitant]
     Route: 065
     Dates: start: 2009
  4. DILZEM [Concomitant]
     Route: 065
     Dates: start: 20090605
  5. DOXAZOSIN [Concomitant]
     Route: 065
     Dates: start: 20090605
  6. GLICLAZIDE [Concomitant]
     Route: 065
     Dates: start: 20090605
  7. METFORMIN [Concomitant]
     Route: 065
     Dates: start: 20090605
  8. RAMIPRIL [Concomitant]
     Route: 065
     Dates: start: 20090605
  9. SIMVASTATIN [Concomitant]
     Route: 065
     Dates: start: 20090605

REACTIONS (2)
  - Necrosis [Recovered/Resolved]
  - Femoral artery occlusion [Recovered/Resolved]
